FAERS Safety Report 22119515 (Version 1)
Quarter: 2023Q1

REPORT INFORMATION
  Report Type: Spontaneous
  Country: US (occurrence: None)
  Receive Date: 20230321
  Receipt Date: 20230321
  Transmission Date: 20230417
  Serious: No
  Sender: FDA-Public Use
  Company Number: US-ROCHE-3011532

PATIENT
  Sex: Female

DRUGS (8)
  1. ERIVEDGE [Suspect]
     Active Substance: VISMODEGIB
     Indication: Soft tissue disorder
     Dosage: TAKE 1 CAPSULE BY MOUTH DAILY FOR 1 WEEK, THEN OFF FOR 3 WEEKS. FOLLOW THIS ROUTINE MONTHLY FOR 1 YE
     Route: 048
  2. AMLODIPINE [Concomitant]
     Active Substance: AMLODIPINE BESYLATE
  3. VITAMINS [Concomitant]
     Active Substance: VITAMINS
  4. HYDROCHLOROTHIAZIDE [Concomitant]
     Active Substance: HYDROCHLOROTHIAZIDE
  5. LASIX [Concomitant]
     Active Substance: FUROSEMIDE
  6. MECLIZINE HYDROCHLORIDE [Concomitant]
     Active Substance: MECLIZINE HYDROCHLORIDE
  7. VITAMIN C [Concomitant]
     Active Substance: ASCORBIC ACID
  8. VITAMIN D3 [Concomitant]
     Active Substance: CHOLECALCIFEROL

REACTIONS (2)
  - Lacrimation increased [Not Recovered/Not Resolved]
  - Eye discharge [Not Recovered/Not Resolved]
